FAERS Safety Report 8304542-8 (Version None)
Quarter: 2012Q2

REPORT INFORMATION
  Report Type: 
  Country: None (occurrence: None)
  Receive Date: 20120423
  Receipt Date: 20120416
  Transmission Date: 20120825
  Serious: Yes (Other)
  Sender: FDA-Public Use
  Company Number: US-GLAXOSMITHKLINE-A0973846A

PATIENT
  Age: 48 Year
  Sex: Female

DRUGS (4)
  1. ALBUTEROL [Concomitant]
  2. SYNTHROID [Concomitant]
  3. ADVAIR DISKUS 100/50 [Suspect]
     Indication: ASTHMA EXERCISE INDUCED
     Dosage: 1PUFF PER DAY
     Route: 055
     Dates: start: 20060101
  4. SINGULAIR [Concomitant]

REACTIONS (2)
  - VISUAL IMPAIRMENT [None]
  - CATARACT [None]
